FAERS Safety Report 10559529 (Version 2)
Quarter: 2015Q1

REPORT INFORMATION
  Report Type: Report from Study
  Country: ES (occurrence: ES)
  Receive Date: 20141103
  Receipt Date: 20150204
  Transmission Date: 20150720
  Serious: Yes (Other)
  Sender: FDA-Public Use
  Company Number: PHHY2014ES139568

PATIENT
  Age: 39 Year
  Sex: Female

DRUGS (2)
  1. GILENYA [Suspect]
     Active Substance: FINGOLIMOD HYDROCHLORIDE
     Indication: MULTIPLE SCLEROSIS
     Dosage: 0.5 MG
     Route: 048
     Dates: start: 20141010
  2. GILENYA [Suspect]
     Active Substance: FINGOLIMOD HYDROCHLORIDE
     Dosage: UNK
     Route: 065

REACTIONS (10)
  - Headache [Recovering/Resolving]
  - Myalgia [Recovering/Resolving]
  - Incontinence [Unknown]
  - Multiple sclerosis relapse [Recovered/Resolved]
  - Blood pressure decreased [Recovering/Resolving]
  - Alopecia [Unknown]
  - Gait disturbance [Unknown]
  - Fatigue [Recovering/Resolving]
  - Pruritus [Unknown]
  - Mobility decreased [Recovering/Resolving]

NARRATIVE: CASE EVENT DATE: 20141010
